FAERS Safety Report 23457345 (Version 1)
Quarter: 2024Q1

REPORT INFORMATION
  Report Type: Spontaneous
  Country: CN (occurrence: CN)
  Receive Date: 20240130
  Receipt Date: 20240130
  Transmission Date: 20240409
  Serious: Yes (Other)
  Sender: FDA-Public Use
  Company Number: None

PATIENT
  Age: 70 Year
  Sex: Female
  Weight: 66 kg

DRUGS (1)
  1. MANNITOL [Suspect]
     Active Substance: MANNITOL
     Indication: Brain oedema
     Dosage: (DOSAGE FORM: INJECTION) 125 ML, 3 TIMES DAILY
     Route: 041
     Dates: start: 20240117, end: 20240117

REACTIONS (2)
  - Seizure [Recovered/Resolved]
  - Convulsions local [Recovered/Resolved]

NARRATIVE: CASE EVENT DATE: 20240117
